FAERS Safety Report 4349425-3 (Version None)
Quarter: 2004Q2

REPORT INFORMATION
  Report Type: 
  Country: None (occurrence: None)
  Receive Date: 20040428
  Receipt Date: 20040416
  Transmission Date: 20050107
  Serious: Yes (Hospitalization)
  Sender: FDA-Public Use
  Company Number: PHBS2004BE05135

PATIENT
  Sex: Female

DRUGS (4)
  1. GLEEVEC [Suspect]
     Indication: CHRONIC MYELOID LEUKAEMIA
     Route: 048
     Dates: start: 20030101, end: 20031001
  2. GLEEVEC [Suspect]
     Route: 048
  3. DIAMICRON [Concomitant]
     Dosage: 160 MG/DAY
  4. AVANDIA [Concomitant]

REACTIONS (6)
  - DECREASED INSULIN REQUIREMENT [None]
  - DIABETES MELLITUS INADEQUATE CONTROL [None]
  - GENERAL PHYSICAL HEALTH DETERIORATION [None]
  - HYPERGLYCAEMIA [None]
  - HYPOGLYCAEMIC COMA [None]
  - LOSS OF CONSCIOUSNESS [None]
